FAERS Safety Report 11167533 (Version 1)
Quarter: 2015Q2

REPORT INFORMATION
  Report Type: Spontaneous
  Country: US (occurrence: None)
  Receive Date: 20150603
  Receipt Date: 20150603
  Transmission Date: 20150821
  Serious: Yes (Other)
  Sender: FDA-Public Use
  Company Number: 2015PRN00030

PATIENT
  Age: 82 Year
  Sex: Male

DRUGS (1)
  1. DONEPEZIL HCL [Suspect]
     Active Substance: DONEPEZIL HYDROCHLORIDE
     Route: 048

REACTIONS (5)
  - Vomiting [None]
  - Fatigue [None]
  - Accidental exposure to product [None]
  - Dehydration [None]
  - Muscle spasms [None]
